FAERS Safety Report 12088858 (Version 3)
Quarter: 2016Q2

REPORT INFORMATION
  Report Type: Spontaneous
  Country: JP (occurrence: JP)
  Receive Date: 20160218
  Receipt Date: 20160527
  Transmission Date: 20160815
  Serious: No
  Sender: FDA-Public Use
  Company Number: JP-ASTELLAS-2016JP002202

PATIENT
  Age: 77 Year
  Sex: Male

DRUGS (10)
  1. BETANIS [Suspect]
     Active Substance: MIRABEGRON
     Indication: HYPERTONIC BLADDER
     Route: 048
     Dates: start: 20151024, end: 20160123
  2. LYRICA [Suspect]
     Active Substance: PREGABALIN
     Indication: BACK PAIN
     Route: 048
     Dates: start: 20151107, end: 20160123
  3. URIEF [Concomitant]
     Active Substance: SILODOSIN
     Indication: DYSURIA
     Route: 048
     Dates: start: 20150704, end: 20160123
  4. GASTER [Concomitant]
     Active Substance: FAMOTIDINE
     Indication: GASTRITIS
     Route: 048
     Dates: start: 20151107, end: 20151225
  5. MYONAL                             /00287502/ [Suspect]
     Active Substance: EPERISONE HYDROCHLORIDE
     Indication: BACK PAIN
     Route: 048
     Dates: start: 20151205, end: 20151225
  6. LOXONIN [Concomitant]
     Active Substance: LOXOPROFEN SODIUM
     Indication: BACK PAIN
     Route: 048
     Dates: start: 20151226, end: 20160115
  7. BETANIS [Suspect]
     Active Substance: MIRABEGRON
     Indication: POLLAKIURIA
  8. CELECOX [Concomitant]
     Active Substance: CELECOXIB
     Indication: BACK PAIN
     Route: 048
     Dates: start: 20160116, end: 20160123
  9. TAKEPRON [Suspect]
     Active Substance: LANSOPRAZOLE
     Indication: GASTRITIS
     Route: 048
     Dates: start: 20151225, end: 20160123
  10. NEUROTROPIN                        /00398601/ [Concomitant]
     Active Substance: CYANOCOBALAMIN\LIDOCAINE HYDROCHLORIDE\PYRIDOXINE HYDROCHLORIDE\THIAMINE HYDROCHLORIDE
     Indication: BACK PAIN
     Route: 048
     Dates: start: 20151107, end: 20151204

REACTIONS (1)
  - Intention tremor [Recovered/Resolved]

NARRATIVE: CASE EVENT DATE: 20160123
